FAERS Safety Report 10468956 (Version 2)
Quarter: 2014Q4

REPORT INFORMATION
  Report Type: Report from Study
  Country: US (occurrence: US)
  Receive Date: 20140923
  Receipt Date: 20141023
  Transmission Date: 20150528
  Serious: Yes (Other)
  Sender: FDA-Public Use
  Company Number: US-BEH-2014045124

PATIENT
  Age: 28 Year
  Sex: Female

DRUGS (6)
  1. ATIVAN [Concomitant]
     Active Substance: LORAZEPAM
  2. CYTOGAM [Suspect]
     Active Substance: HUMAN CYTOMEGALOVIRUS IMMUNE GLOBULIN
     Indication: CYTOMEGALOVIRUS INFECTION
     Route: 042
     Dates: start: 20140902, end: 20140902
  3. FLUOXETINE [Concomitant]
     Active Substance: FLUOXETINE\FLUOXETINE HYDROCHLORIDE
     Route: 048
     Dates: start: 20140403, end: 20140612
  4. ALBUMINAR-5 [Suspect]
     Active Substance: ALBUMIN (HUMAN)
     Indication: CYTOMEGALOVIRUS INFECTION
  5. CYTOGAM [Suspect]
     Active Substance: HUMAN CYTOMEGALOVIRUS IMMUNE GLOBULIN
     Route: 042
     Dates: start: 20140408, end: 20140408
  6. CLONAZEPAM. [Concomitant]
     Active Substance: CLONAZEPAM
     Indication: ANXIETY
     Dates: start: 20140612

REACTIONS (2)
  - Foetal death [Recovered/Resolved]
  - Exposure during pregnancy [Recovered/Resolved]

NARRATIVE: CASE EVENT DATE: 20140408
